FAERS Safety Report 6464444-9 (Version None)
Quarter: 2009Q4

REPORT INFORMATION
  Report Type: 
  Country: None (occurrence: None)
  Receive Date: 20091201
  Receipt Date: 20091118
  Transmission Date: 20100525
  Serious: Yes (Hospitalization)
  Sender: FDA-Public Use
  Company Number: AT-GENENTECH-294903

PATIENT
  Sex: Female

DRUGS (4)
  1. AVASTIN [Suspect]
     Indication: BREAST CANCER
     Dosage: UNK
     Route: 042
  2. TRASTUZUMAB [Suspect]
     Indication: BREAST CANCER
     Dosage: 300 MG, Q3W
     Route: 042
     Dates: start: 20090320
  3. CARBOPLATIN [Suspect]
     Indication: BREAST CANCER
     Dosage: 957.6 MG, Q3W
     Route: 042
     Dates: start: 20090320
  4. DOCETAXEL [Suspect]
     Indication: BREAST CANCER
     Dosage: 110.25 MG, Q3W
     Route: 042
     Dates: start: 20090320

REACTIONS (1)
  - ANAEMIA [None]
